FAERS Safety Report 23773724 (Version 3)
Quarter: 2024Q2

REPORT INFORMATION
  Report Type: Spontaneous
  Country: IT (occurrence: IT)
  Receive Date: 20240423
  Receipt Date: 20240507
  Transmission Date: 20240716
  Serious: Yes (Hospitalization, Other)
  Sender: FDA-Public Use
  Company Number: IT-PFIZER INC-PV202400051349

PATIENT
  Age: 77 Year
  Sex: Female
  Weight: 78 kg

DRUGS (6)
  1. CARBOPLATIN [Suspect]
     Active Substance: CARBOPLATIN
     Indication: Lung neoplasm malignant
     Dosage: 417 MG, ACCORDING TO CALVERT FORMULA ON DAY 1
  2. CARBOPLATIN [Suspect]
     Active Substance: CARBOPLATIN
     Dosage: 275 MG, CYCLIC: ON DAY 1 EVERY 21 DAYS/SECOND CYCLE
  3. CARBOPLATIN [Suspect]
     Active Substance: CARBOPLATIN
     Dosage: 203 MG, CYCLIC: THE THIRD CYCLE ON DAY 1 EVERY 21 DAYS
  4. PEMBROLIZUMAB [Concomitant]
     Active Substance: PEMBROLIZUMAB
     Indication: Lung neoplasm malignant
     Dosage: 200 MG DOSE ON DAY 1, EVERY 21 DAYS
  5. PACLITAXEL [Concomitant]
     Active Substance: PACLITAXEL
     Indication: Lung neoplasm malignant
     Dosage: 100 MG/M2 DOSE ON DAYS 1, 8, AND 15
  6. PANTOPRAZOLE [Concomitant]
     Active Substance: PANTOPRAZOLE
     Dosage: UNK

REACTIONS (4)
  - Acute kidney injury [Recovered/Resolved]
  - Hypomagnesaemia [Recovered/Resolved]
  - Leukocyturia [Unknown]
  - Off label use [Unknown]
